FAERS Safety Report 6649180-8 (Version None)
Quarter: 2010Q1

REPORT INFORMATION
  Report Type: 
  Country: None (occurrence: None)
  Receive Date: 20100324
  Receipt Date: 20100316
  Transmission Date: 20100710
  Serious: Yes (Hospitalization)
  Sender: FDA-Public Use
  Company Number: B0617312A

PATIENT
  Age: 36 Year
  Sex: Female

DRUGS (2)
  1. TYKERB [Suspect]
     Indication: BREAST CANCER
     Route: 048
     Dates: start: 20090801
  2. XELODA [Concomitant]
     Route: 048

REACTIONS (4)
  - COUGH [None]
  - DYSPNOEA [None]
  - LYMPHANGIOSIS CARCINOMATOSA [None]
  - PYREXIA [None]
